FAERS Safety Report 4661396-9 (Version None)
Quarter: 2005Q2

REPORT INFORMATION
  Report Type: 
  Country: None (occurrence: None)
  Receive Date: 20050513
  Receipt Date: 20040709
  Transmission Date: 20051028
  Serious: Yes (Death, Hospitalization)
  Sender: FDA-Public Use
  Company Number: GB-SANOFI-SYNTHELABO-D01200402600

PATIENT
  Sex: Female
  Weight: 49 kg

DRUGS (4)
  1. SR57746 OR PLACEBO [Suspect]
     Route: 048
     Dates: start: 20040323, end: 20040623
  2. OXALIPLATIN [Suspect]
     Route: 042
     Dates: start: 20040607, end: 20040607
  3. FLUOROURACIL [Suspect]
     Dosage: 400 MG/M2 AS IV BOLUS THEN 600 MG/M2 AS 22 HOURS CONTINUOUS INFUSION D1-D2 Q2W
     Route: 042
     Dates: start: 20040607, end: 20040608
  4. LEUCOVORIN CALCIUM [Suspect]
     Dosage: 200 MG/M2 AS 2 HOURS INFUSION ON D1-D2 Q2W
     Route: 042
     Dates: start: 20040607, end: 20040608

REACTIONS (7)
  - ANAEMIA [None]
  - C-REACTIVE PROTEIN INCREASED [None]
  - COUGH [None]
  - GENERAL PHYSICAL HEALTH DETERIORATION [None]
  - HYPOALBUMINAEMIA [None]
  - LUNG CONSOLIDATION [None]
  - NEUTROPENIC INFECTION [None]
